FAERS Safety Report 6091278-X (Version None)
Quarter: 2009Q1

REPORT INFORMATION
  Report Type: 
  Country: None (occurrence: None)
  Receive Date: 20090220
  Receipt Date: 20090220
  Transmission Date: 20090719
  Serious: Yes (Other)
  Sender: FDA-Public Use
  Company Number: None

PATIENT
  Age: 64 Year
  Sex: Male

DRUGS (8)
  1. FLUTICASONE PROPIONATE [Suspect]
     Indication: RHINITIS
     Dosage: USE NASALLY DAILY AS DIRECTED
     Route: 045
     Dates: start: 20090202, end: 20090206
  2. PREVACID [Concomitant]
  3. CRESTOR [Concomitant]
  4. BUPROPION HCL [Concomitant]
  5. PROVIGIL [Concomitant]
  6. TIKOSYN [Concomitant]
  7. FLUVOXAMINE [Concomitant]
  8. GABAPENTIN [Concomitant]

REACTIONS (2)
  - DRUG INEFFECTIVE [None]
  - THERAPEUTIC RESPONSE UNEXPECTED WITH DRUG SUBSTITUTION [None]
